FAERS Safety Report 12430162 (Version 1)
Quarter: 2016Q2

REPORT INFORMATION
  Report Type: Spontaneous
  Country: US (occurrence: US)
  Receive Date: 20160602
  Receipt Date: 20160602
  Transmission Date: 20160815
  Serious: No
  Sender: FDA-Public Use
  Company Number: US-LUNDBECK-DKLU2013244

PATIENT
  Sex: Male

DRUGS (3)
  1. NORTHERA [Suspect]
     Active Substance: DROXIDOPA
     Dosage: PER TITRATION SCHEDULE B
     Route: 048
     Dates: start: 20160428
  2. NORTHERA [Suspect]
     Active Substance: DROXIDOPA
     Indication: POSTURAL ORTHOSTATIC TACHYCARDIA SYNDROME
     Route: 048
  3. NORTHERA [Suspect]
     Active Substance: DROXIDOPA
     Dosage: OVERDOSE: 2000MG
     Route: 048

REACTIONS (4)
  - Prescribed overdose [Unknown]
  - Headache [Unknown]
  - Dizziness [Unknown]
  - Drug ineffective [Unknown]
